FAERS Safety Report 20081158 (Version 1)
Quarter: 2021Q4

REPORT INFORMATION
  Report Type: Spontaneous
  Country: FR (occurrence: FR)
  Receive Date: 20211117
  Receipt Date: 20211117
  Transmission Date: 20220303
  Serious: Yes (Hospitalization, Congenital Anomaly, Other)
  Sender: FDA-Public Use
  Company Number: FR-ABBVIE-21K-056-4160497-00

PATIENT
  Sex: Male

DRUGS (1)
  1. VALPROATE SODIUM [Suspect]
     Active Substance: VALPROATE SODIUM
     Indication: Maternal exposure timing unspecified
     Route: 064

REACTIONS (100)
  - Congenital eyelid malformation [Unknown]
  - Brachydactyly [Unknown]
  - Congenital nipple anomaly [Unknown]
  - Congenital foot malformation [Unknown]
  - Paraesthesia [Unknown]
  - Paraesthesia [Unknown]
  - Shoulder dystocia [Unknown]
  - Congenital knee deformity [Unknown]
  - Talipes [Unknown]
  - Developmental hip dysplasia [Unknown]
  - Dysmorphism [Unknown]
  - Adenoidectomy [Unknown]
  - Congenital multiplex arthrogryposis [Unknown]
  - Salivary gland cancer [Unknown]
  - Otitis media [Unknown]
  - Spine malformation [Unknown]
  - Astigmatism [Unknown]
  - Finger deformity [Unknown]
  - Pasteurella infection [Unknown]
  - Ear, nose and throat infection [Unknown]
  - Otorrhoea [Unknown]
  - Nasopharyngitis [Unknown]
  - Irregular breathing [Unknown]
  - Ear infection [Unknown]
  - Joint noise [Unknown]
  - Laryngitis [Unknown]
  - Deformity thorax [Unknown]
  - Arthropathy [Unknown]
  - Hand deformity [Unknown]
  - Psychomotor retardation [Unknown]
  - Balance disorder [Unknown]
  - Gait disturbance [Unknown]
  - Dysgraphia [Unknown]
  - Language disorder [Unknown]
  - Speech disorder developmental [Unknown]
  - Echolalia [Unknown]
  - Dysphemia [Unknown]
  - Behaviour disorder [Unknown]
  - Intellectual disability [Unknown]
  - Fine motor skill dysfunction [Unknown]
  - Disinhibition [Unknown]
  - Learning disorder [Unknown]
  - Antisocial behaviour [Unknown]
  - Memory impairment [Unknown]
  - Learning disability [Unknown]
  - Cyanosis [Unknown]
  - Hypotonia [Unknown]
  - Nose deformity [Unknown]
  - Deformity thorax [Unknown]
  - Torticollis [Unknown]
  - Amyotrophy [Unknown]
  - Joint range of motion decreased [Unknown]
  - Shoulder deformity [Unknown]
  - Joint stiffness [Unknown]
  - Toe walking [Unknown]
  - Confusional state [Unknown]
  - Drooling [Unknown]
  - Disorientation [Unknown]
  - Psychomotor skills impaired [Unknown]
  - Emotional disorder [Unknown]
  - Anxiety disorder [Unknown]
  - Hypoacusis [Unknown]
  - Atrophy [Unknown]
  - Personal relationship issue [Unknown]
  - Frustration tolerance decreased [Unknown]
  - Scoliosis [Unknown]
  - Myopia [Unknown]
  - Strabismus [Unknown]
  - Dyspraxia [Unknown]
  - Sleep disorder [Unknown]
  - Aphasia [Unknown]
  - Kyphosis [Unknown]
  - Pain in extremity [Unknown]
  - Orthosis user [Unknown]
  - Joint stiffness [Unknown]
  - Foot deformity [Unknown]
  - Developmental coordination disorder [Unknown]
  - Disorientation [Unknown]
  - Pectus excavatum [Unknown]
  - Fatigue [Unknown]
  - Distractibility [Unknown]
  - Grip strength decreased [Unknown]
  - Affective disorder [Unknown]
  - Cognitive disorder [Unknown]
  - Knee deformity [Unknown]
  - Depressed level of consciousness [Unknown]
  - Foetal exposure during pregnancy [Unknown]
  - Deafness [Unknown]
  - Unevaluable event [Unknown]
  - Disturbance in attention [Unknown]
  - Rhinitis [Unknown]
  - Bradycardia [Unknown]
  - Tachycardia [Unknown]
  - Bronchitis [Unknown]
  - Cough [Unknown]
  - Anxiety [Unknown]
  - Developmental delay [Unknown]
  - Disturbance in attention [Unknown]
  - Arthralgia [Unknown]
  - Somnolence [Unknown]

NARRATIVE: CASE EVENT DATE: 20040301
